FAERS Safety Report 6433028-0 (Version None)
Quarter: 2009Q4

REPORT INFORMATION
  Report Type: 
  Country: None (occurrence: None)
  Receive Date: 20091105
  Receipt Date: 20091021
  Transmission Date: 20100525
  Serious: Yes (Other)
  Sender: FDA-Public Use
  Company Number: MSTR-NO-0910S-0200

PATIENT
  Sex: Male

DRUGS (1)
  1. METASTRON [Suspect]
     Indication: METASTATIC PAIN
     Dosage: 95.8 MBQ, SINGLE DOSE, I.V.
     Route: 042
     Dates: start: 20090514, end: 20090514

REACTIONS (1)
  - ANAEMIA [None]
